FAERS Safety Report 5276179-9 (Version None)
Quarter: 2007Q1

REPORT INFORMATION
  Report Type: 
  Country: None (occurrence: None)
  Receive Date: 20070326
  Receipt Date: 20070123
  Transmission Date: 20070707
  Serious: Yes (Death)
  Sender: FDA-Public Use
  Company Number: US-SANOFI-SYNTHELABO-F01200403709

PATIENT
  Sex: Male
  Weight: 83.9 kg

DRUGS (18)
  1. OXYCODONE HCL [Concomitant]
     Indication: BACK PAIN
     Dosage: 10 MG
     Route: 048
     Dates: start: 20041020, end: 20041022
  2. OXYCODONE HCL [Concomitant]
     Route: 048
     Dates: start: 20041022, end: 20041101
  3. HYDROCODONE [Concomitant]
     Indication: BACK PAIN
     Dosage: 5150 MG
     Route: 048
     Dates: start: 20041015
  4. TUSSIONEX [Concomitant]
     Indication: COUGH
     Dosage: 15 ML
     Route: 048
     Dates: start: 20040815
  5. MAGNESIUM SULFATE [Concomitant]
     Indication: BACK PAIN
     Route: 042
     Dates: start: 20041021, end: 20041021
  6. ASPIRIN [Concomitant]
     Dosage: 81 MG
     Route: 048
     Dates: start: 20041113, end: 20041115
  7. PLAVIX [Concomitant]
     Dosage: 75 MG
     Route: 048
     Dates: start: 20041113, end: 20041115
  8. PROTONIX [Concomitant]
     Indication: ABDOMINAL PAIN UPPER
     Dosage: 40 MG
     Route: 048
     Dates: start: 20041021
  9. COMPAZINE [Concomitant]
     Indication: NAUSEA
     Dosage: 10 MG
     Route: 048
     Dates: start: 20041021
  10. ATIVAN [Concomitant]
     Indication: NAUSEA
     Dosage: 1 MG
     Route: 048
     Dates: start: 20041021
  11. OXYCONTIN [Concomitant]
     Indication: BACK PAIN
     Route: 048
     Dates: start: 20041101
  12. MILK OF MAGNESIA [Concomitant]
     Indication: CONSTIPATION
     Dosage: 30 ML
     Route: 048
     Dates: start: 20041022
  13. MAGNESIUM SULFATE [Concomitant]
     Indication: PROPHYLAXIS
     Route: 042
     Dates: start: 20041021
  14. CALCIUM GLUCONATE [Concomitant]
     Indication: PROPHYLAXIS
     Route: 042
     Dates: start: 20041021
  15. DECADRON [Concomitant]
     Indication: NAUSEA
     Route: 042
     Dates: start: 20041021
  16. KYTRIL [Concomitant]
     Indication: NAUSEA
     Route: 042
     Dates: start: 20041021
  17. GEMCITABINE [Suspect]
     Route: 042
     Dates: start: 20041117, end: 20041117
  18. OXALIPLATIN [Suspect]
     Indication: NON-SMALL CELL LUNG CANCER
     Route: 042
     Dates: start: 20041110, end: 20041110

REACTIONS (2)
  - EPISTAXIS [None]
  - HAEMOPTYSIS [None]
